FAERS Safety Report 8311537-7 (Version None)
Quarter: 2012Q2

REPORT INFORMATION
  Report Type: 
  Country: None (occurrence: None)
  Receive Date: 20120425
  Receipt Date: 20120420
  Transmission Date: 20120825
  Serious: Yes (Other)
  Sender: FDA-Public Use
  Company Number: US-BAYER-2012-039818

PATIENT
  Age: 77 Year
  Sex: Male

DRUGS (9)
  1. UNITHROID [Concomitant]
  2. NEXAVAR [Suspect]
     Indication: THYROID CANCER
     Dosage: 200 MG, QOD
     Route: 048
     Dates: start: 20071128, end: 20120412
  3. ADVAIR DISKUS 100/50 [Concomitant]
  4. DRONEDARONE HCL [Concomitant]
  5. FLUOROURACIL [Concomitant]
  6. PREDNISOLONE [Concomitant]
  7. ATROVENT [Concomitant]
  8. NEVANAC [Concomitant]
  9. VIGAMOX [Concomitant]

REACTIONS (4)
  - ASTHENIA [None]
  - PAINFUL DEFAECATION [None]
  - ALOPECIA [None]
  - THYROID CANCER [None]
